FAERS Safety Report 5587275-0 (Version None)
Quarter: 2008Q1

REPORT INFORMATION
  Report Type: 
  Country: None (occurrence: None)
  Receive Date: 20080107
  Receipt Date: 20071221
  Transmission Date: 20080703
  Serious: Yes (Hospitalization)
  Sender: FDA-Public Use
  Company Number: S07-FRA-06496-01

PATIENT
  Age: 82 Year
  Sex: Female

DRUGS (10)
  1. CITALOPRAM HYDROBROMIDE [Suspect]
     Dosage: 1 QD PO
     Route: 048
  2. MEMANTINE HCL [Suspect]
     Dosage: 10 MG BID PO
     Route: 048
  3. IZILOX (MOXIFLOXACIN) [Suspect]
     Indication: BRONCHITIS
     Dosage: 400 MG QD PO
     Route: 048
     Dates: start: 20070724, end: 20070730
  4. PULMICORT [Suspect]
     Dates: start: 20070724, end: 20070730
  5. ADANCOR (NICORANDIL) [Suspect]
     Dosage: 2 QD PO
     Route: 048
  6. PRAVASTATIN [Suspect]
     Dosage: 1 QD PO
     Route: 048
  7. SECTRAL [Suspect]
     Dosage: 1 QD PO
     Route: 048
  8. RAMIPRIL [Suspect]
     Dosage: 1 QD PO
     Route: 048
  9. PLAVIX [Suspect]
     Dosage: 1 QD PO
     Route: 048
  10. CALCIPARINE [Concomitant]

REACTIONS (3)
  - C-REACTIVE PROTEIN INCREASED [None]
  - MALAISE [None]
  - SYNCOPE [None]
